FAERS Safety Report 5511682-5 (Version None)
Quarter: 2007Q4

REPORT INFORMATION
  Report Type: 
  Country: None (occurrence: None)
  Receive Date: 20071109
  Receipt Date: 20071102
  Transmission Date: 20080405
  Serious: Yes (Hospitalization)
  Sender: FDA-Public Use
  Company Number: SE-ASTRAZENECA-2007SE05878

PATIENT
  Age: 82 Year
  Sex: Female

DRUGS (10)
  1. METOPROLOL SUCCINATE [Suspect]
     Indication: ESSENTIAL HYPERTENSION
     Route: 048
  2. NORVASC [Suspect]
     Indication: ESSENTIAL HYPERTENSION
     Route: 048
     Dates: end: 20070930
  3. ENALAPRIL MALEATE [Suspect]
     Indication: ESSENTIAL HYPERTENSION
  4. AMITRIPTYLINE HCL [Concomitant]
  5. BEHEPAN [Concomitant]
  6. DIGOXIN [Concomitant]
  7. BETOPTIC EYE DROPS [Concomitant]
     Route: 047
  8. TROMBYL [Concomitant]
  9. ZOLPIDEM TARTRATE [Concomitant]
  10. ARTELAC [Concomitant]
     Route: 047

REACTIONS (1)
  - ORTHOSTATIC HYPOTENSION [None]
